FAERS Safety Report 6154814-0 (Version None)
Quarter: 2009Q2

REPORT INFORMATION
  Report Type: 
  Country: None (occurrence: None)
  Receive Date: 20090414
  Receipt Date: 20090410
  Transmission Date: 20091009
  Serious: Yes (Life-Threatening, Hospitalization)
  Sender: FDA-Public Use
  Company Number: PHHY2008TR31388

PATIENT
  Sex: Female

DRUGS (2)
  1. FORADIL COMBI [Suspect]
     Indication: ASTHMA
     Dosage: 40 FORADIL AND 40 MIFLONID CAPSULES
     Route: 048
  2. MIFLONID [Suspect]
     Dosage: 40 CAPSULES
     Route: 048

REACTIONS (14)
  - BLOOD ALBUMIN DECREASED [None]
  - BLOOD CALCIUM DECREASED [None]
  - BLOOD CHLORIDE INCREASED [None]
  - BLOOD CREATININE DECREASED [None]
  - BLOOD LACTATE DEHYDROGENASE INCREASED [None]
  - BLOOD POTASSIUM DECREASED [None]
  - BLOOD UREA DECREASED [None]
  - DRUG EXPOSURE DURING PREGNANCY [None]
  - GAMMA-GLUTAMYLTRANSFERASE DECREASED [None]
  - HAEMATOCRIT DECREASED [None]
  - INTENTIONAL OVERDOSE [None]
  - NEUTROPHIL COUNT INCREASED [None]
  - PROTEIN TOTAL DECREASED [None]
  - SUICIDE ATTEMPT [None]
